FAERS Safety Report 12845389 (Version 1)
Quarter: 2016Q4

REPORT INFORMATION
  Report Type: Spontaneous
  Country: US (occurrence: US)
  Receive Date: 20161013
  Receipt Date: 20161013
  Transmission Date: 20170207
  Serious: No
  Sender: FDA-Public Use
  Company Number: US-JAZZ-2016-US-013584

PATIENT
  Sex: Female

DRUGS (14)
  1. CORTISOL [Concomitant]
     Active Substance: HYDROCORTISONE
  2. XYREM [Suspect]
     Active Substance: SODIUM OXYBATE
     Indication: NARCOLEPSY
     Dosage: 2.25 G, BID
     Route: 048
     Dates: start: 201511, end: 201511
  3. PROBIOTIC [Concomitant]
     Active Substance: PROBIOTICS NOS
  4. VITAMIN B COMPLEX [Concomitant]
     Active Substance: CYANOCOBALAMIN\DEXPANTHENOL\NIACINAMIDE\PYRIDOXINE HYDROCHLORIDE\RIBOFLAVIN 5^-PHOSPHATE SODIUM\THIAMINE HYDROCHLORIDE\VITAMIN B COMPLEX
  5. XYREM [Suspect]
     Active Substance: SODIUM OXYBATE
     Dosage: 3 G, BID
     Route: 048
     Dates: start: 2016
  6. MODAFINIL. [Concomitant]
     Active Substance: MODAFINIL
  7. LUNESTA [Concomitant]
     Active Substance: ESZOPICLONE
  8. INOSITOL [Concomitant]
     Active Substance: INOSITOL
  9. XYREM [Suspect]
     Active Substance: SODIUM OXYBATE
     Indication: CATAPLEXY
     Dosage: DOSE ADJUSTMENTS
     Route: 048
     Dates: start: 201511, end: 2016
  10. PAXIL [Concomitant]
     Active Substance: PAROXETINE HYDROCHLORIDE
  11. PAROXETINE. [Concomitant]
     Active Substance: PAROXETINE
  12. VITAMIN D [Concomitant]
     Active Substance: CHOLECALCIFEROL
  13. ADDERALL [Concomitant]
     Active Substance: AMPHETAMINE ASPARTATE\AMPHETAMINE SULFATE\DEXTROAMPHETAMINE SACCHARATE\DEXTROAMPHETAMINE SULFATE
  14. SPIRONOLACTONE. [Concomitant]
     Active Substance: SPIRONOLACTONE

REACTIONS (1)
  - Anxiety [Recovered/Resolved]
